FAERS Safety Report 6094751-3 (Version None)
Quarter: 2009Q1

REPORT INFORMATION
  Report Type: 
  Country: None (occurrence: None)
  Receive Date: 20090225
  Receipt Date: 20090216
  Transmission Date: 20090719
  Serious: Yes (Other)
  Sender: FDA-Public Use
  Company Number: 08-000242

PATIENT
  Age: 58 Year
  Sex: Female
  Weight: 49.4 kg

DRUGS (4)
  1. FEMRING [Suspect]
     Indication: MENOPAUSAL SYMPTOMS
     Dosage: .05 MG, QD, VAGINAL
     Route: 067
     Dates: start: 20060101
  2. FEMRING [Suspect]
     Indication: HOT FLUSH
     Dosage: VAGINAL
     Route: 067
  3. FEMRING [Suspect]
     Indication: HOT FLUSH
     Dosage: UNK, VAGINAL
     Route: 067
  4. NEXIUM [Concomitant]

REACTIONS (3)
  - DRUG INEFFECTIVE [None]
  - INTERVERTEBRAL DISC PROTRUSION [None]
  - PRODUCT QUALITY ISSUE [None]
